FAERS Safety Report 16687602 (Version 4)
Quarter: 2020Q2

REPORT INFORMATION
  Report Type: Spontaneous
  Country: US (occurrence: US)
  Receive Date: 20190809
  Receipt Date: 20200601
  Transmission Date: 20200713
  Serious: Yes (Other)
  Sender: FDA-Public Use
  Company Number: US-JNJFOC-20190804562

PATIENT
  Age: 44 Year
  Sex: Male

DRUGS (1)
  1. REMICADE [Suspect]
     Active Substance: INFLIXIMAB
     Indication: BEHCET^S SYNDROME
     Route: 042

REACTIONS (5)
  - Mouth ulceration [Not Recovered/Not Resolved]
  - Blindness [Unknown]
  - Abdominal pain upper [Not Recovered/Not Resolved]
  - Gait disturbance [Unknown]
  - Genital ulceration [Not Recovered/Not Resolved]

NARRATIVE: CASE EVENT DATE: 20190801
